FAERS Safety Report 7340849-9 (Version None)
Quarter: 2011Q1

REPORT INFORMATION
  Report Type: 
  Country: None (occurrence: None)
  Receive Date: 20110309
  Receipt Date: 20110222
  Transmission Date: 20110831
  Serious: Yes (Death, Hospitalization)
  Sender: FDA-Public Use
  Company Number: JP-ALEXION-A201000982

PATIENT
  Age: 63 Year
  Sex: Female

DRUGS (3)
  1. PREDNISOLONE [Concomitant]
     Dosage: 60 MG, UNK
     Dates: start: 20100518, end: 20100811
  2. SOLIRIS [Suspect]
     Indication: PAROXYSMAL NOCTURNAL HAEMOGLOBINURIA
     Dosage: 600 MG, QW
     Route: 042
     Dates: start: 20100721, end: 20100728
  3. CICLOSPORIN [Concomitant]
     Dosage: 200 MG, UNK
     Dates: start: 20050503, end: 20100729

REACTIONS (4)
  - LUNG INFECTION [None]
  - GASTROINTESTINAL HAEMORRHAGE [None]
  - CEREBRAL HAEMORRHAGE [None]
  - COMA [None]
